FAERS Safety Report 21528928 (Version 8)
Quarter: 2024Q2

REPORT INFORMATION
  Report Type: Spontaneous
  Country: ES (occurrence: ES)
  Receive Date: 20221031
  Receipt Date: 20240607
  Transmission Date: 20240716
  Serious: Yes (Death, Other)
  Sender: FDA-Public Use
  Company Number: None

PATIENT
  Age: 39 Year
  Sex: Male

DRUGS (11)
  1. LINEZOLID [Suspect]
     Active Substance: LINEZOLID
     Indication: Pneumonia
     Dosage: 600MG EVERY 12 HOURS
     Route: 042
     Dates: start: 20220818, end: 20220819
  2. ENOXAPARIN [Suspect]
     Active Substance: ENOXAPARIN
     Indication: Prophylaxis
     Dosage: 1 EVERY 24H,(4.000 UI) INJECTABLE 0,4 ML
     Route: 058
     Dates: start: 20220818
  3. ACETAMINOPHEN [Suspect]
     Active Substance: ACETAMINOPHEN
     Indication: Pyrexia
     Dosage: UNK
     Route: 042
     Dates: start: 20220818, end: 20220819
  4. MEROPENEM [Suspect]
     Active Substance: MEROPENEM
     Indication: Pneumonia
     Dosage: 1 GRAM, Q8H
     Route: 042
     Dates: start: 20220818
  5. TECLISTAMAB [Suspect]
     Active Substance: TECLISTAMAB
     Indication: Plasma cell myeloma refractory
     Dosage: UNK
     Route: 065
     Dates: start: 20220624, end: 20220812
  6. TECLISTAMAB [Suspect]
     Active Substance: TECLISTAMAB
     Dosage: 600 MILLIGRAM, QD
     Route: 065
     Dates: start: 20220818, end: 20220818
  7. DEXAMETHASONE [Suspect]
     Active Substance: DEXAMETHASONE
     Indication: COVID-19
     Dosage: UNK
     Route: 065
  8. DEXAMETHASONE [Suspect]
     Active Substance: DEXAMETHASONE
     Dosage: 6MG EVERY 24H,4 MG INJECTABLE 1 ML 1 VIAL
     Route: 042
     Dates: start: 20220818, end: 20220819
  9. TOCILIZUMAB [Suspect]
     Active Substance: TOCILIZUMAB
     Indication: COVID-19
     Dosage: 600 MG, 1 TOTAL (SINGLE DOSE)
     Route: 042
     Dates: start: 20220818, end: 20220818
  10. TOCILIZUMAB [Suspect]
     Active Substance: TOCILIZUMAB
     Indication: Pneumonia
  11. TOCILIZUMAB [Suspect]
     Active Substance: TOCILIZUMAB
     Indication: Pyrexia

REACTIONS (2)
  - Hepatitis fulminant [Fatal]
  - Hepatitis acute [Fatal]

NARRATIVE: CASE EVENT DATE: 20220820
